FAERS Safety Report 9895225 (Version 9)
Quarter: 2018Q1

REPORT INFORMATION
  Report Type: Report from Study
  Country: US (occurrence: US)
  Receive Date: 20140213
  Receipt Date: 20180122
  Transmission Date: 20180509
  Serious: Yes (Disabling, Other)
  Sender: FDA-Public Use
  Company Number: US-SA-2013SA106523

PATIENT
  Age: 61 Year
  Sex: Female
  Weight: 61.2 kg

DRUGS (11)
  1. AUBAGIO [Suspect]
     Active Substance: TERIFLUNOMIDE
     Indication: MULTIPLE SCLEROSIS
     Dosage: TAKEN FROM: TWO WEEKS
     Route: 048
     Dates: start: 20131001
  2. AUBAGIO [Suspect]
     Active Substance: TERIFLUNOMIDE
     Indication: MULTIPLE SCLEROSIS
     Dosage: TAKEN FROM: TWO WEEKS
     Route: 048
     Dates: start: 20160408, end: 201710
  3. AUBAGIO [Suspect]
     Active Substance: TERIFLUNOMIDE
     Indication: MULTIPLE SCLEROSIS
     Dosage: TAKEN FROM: TWO WEEKS
     Route: 048
     Dates: start: 20160408, end: 201710
  4. AUBAGIO [Suspect]
     Active Substance: TERIFLUNOMIDE
     Indication: MULTIPLE SCLEROSIS
     Dosage: TAKEN FROM: TWO WEEKS
     Route: 048
     Dates: start: 20131001
  5. REBIF [Concomitant]
     Active Substance: INTERFERON BETA-1A
     Indication: MULTIPLE SCLEROSIS
     Dates: start: 2002, end: 2013
  6. LISINOPRIL. [Concomitant]
     Active Substance: LISINOPRIL
  7. ROPINIROLE. [Concomitant]
     Active Substance: ROPINIROLE
  8. AMPYRA [Concomitant]
     Active Substance: DALFAMPRIDINE
  9. SENNA [Concomitant]
     Active Substance: SENNA LEAF\SENNOSIDES\SENNOSIDES A AND B
  10. NITROFURANTOIN. [Concomitant]
     Active Substance: NITROFURANTOIN
  11. AMLODIPINE [Concomitant]
     Active Substance: AMLODIPINE BESYLATE

REACTIONS (11)
  - Peripheral vascular disorder [Unknown]
  - Gait disturbance [Recovered/Resolved]
  - Dysstasia [Not Recovered/Not Resolved]
  - Nasopharyngitis [Unknown]
  - Full blood count decreased [Unknown]
  - Asthenia [Not Recovered/Not Resolved]
  - Alopecia [Recovered/Resolved]
  - Scoliosis [Not Recovered/Not Resolved]
  - Back pain [Not Recovered/Not Resolved]
  - Fall [Not Recovered/Not Resolved]
  - Feeling abnormal [Unknown]

NARRATIVE: CASE EVENT DATE: 201401
